FAERS Safety Report 21814389 (Version 1)
Quarter: 2023Q1

REPORT INFORMATION
  Report Type: Spontaneous
  Country: US (occurrence: US)
  Receive Date: 20230104
  Receipt Date: 20230104
  Transmission Date: 20230417
  Serious: No
  Sender: FDA-Public Use
  Company Number: US-JNJFOC-20221233496

PATIENT
  Age: 79 Year
  Sex: Male

DRUGS (6)
  1. IMODIUM [Suspect]
     Active Substance: LOPERAMIDE HYDROCHLORIDE
     Indication: Diarrhoea
     Dosage: LAST USE DATE 05-DEC-2022
     Route: 065
  2. TYVASO [Concomitant]
     Active Substance: TREPROSTINIL
     Indication: Pulmonary arterial hypertension
     Route: 065
     Dates: start: 202210
  3. TYVASO [Concomitant]
     Active Substance: TREPROSTINIL
     Route: 065
     Dates: start: 2022
  4. TYVASO [Concomitant]
     Active Substance: TREPROSTINIL
     Route: 065
  5. TYVASO [Concomitant]
     Active Substance: TREPROSTINIL
     Route: 065
  6. TYVASO [Concomitant]
     Active Substance: TREPROSTINIL
     Route: 065
     Dates: start: 2022

REACTIONS (2)
  - Constipation [Unknown]
  - Diarrhoea [Unknown]

NARRATIVE: CASE EVENT DATE: 20220101
